FAERS Safety Report 11331901 (Version 1)
Quarter: 2015Q3

REPORT INFORMATION
  Report Type: Spontaneous
  Country: US (occurrence: US)
  Receive Date: 20150803
  Receipt Date: 20150803
  Transmission Date: 20151125
  Serious: Yes (Hospitalization)
  Sender: FDA-Public Use
  Company Number: US-ELI_LILLY_AND_COMPANY-US200804004249

PATIENT
  Age: 31 Year
  Sex: Female
  Weight: 58.96 kg

DRUGS (12)
  1. TEMAZEPAM. [Concomitant]
     Active Substance: TEMAZEPAM
     Indication: SLEEP DISORDER
  2. LOESTRIN NOS [Concomitant]
     Active Substance: ETHINYL ESTRADIOL\NORETHINDRONE ACETATE
     Indication: ORAL CONTRACEPTION
  3. ZYPREXA [Suspect]
     Active Substance: OLANZAPINE
     Indication: ANXIETY
     Dosage: 5 MG, UNK
     Dates: start: 20080402, end: 20080408
  4. LUNESTA [Concomitant]
     Active Substance: ESZOPICLONE
     Indication: SLEEP DISORDER
     Dosage: 3 MG, EACH EVENING
  5. ZYPREXA [Suspect]
     Active Substance: OLANZAPINE
     Dosage: 5 MG, UNK
     Dates: start: 20080416, end: 20080422
  6. ATIVAN [Concomitant]
     Active Substance: LORAZEPAM
     Indication: ANXIETY
     Dosage: 0.5 MG, AS NEEDED
  7. ZOLOFT [Concomitant]
     Active Substance: SERTRALINE HYDROCHLORIDE
     Dosage: 150 MG, DAILY (1/D)
  8. MAXALT /NET/ [Concomitant]
     Indication: HEADACHE
     Dosage: 10 MG, AS NEEDED
  9. ZYPREXA [Suspect]
     Active Substance: OLANZAPINE
     Dosage: 10 MG, UNK
     Dates: start: 20080409, end: 20080415
  10. ZOLOFT [Concomitant]
     Active Substance: SERTRALINE HYDROCHLORIDE
     Dosage: 50 MG, EACH EVENING
     Dates: start: 20080201
  11. ZOLOFT [Concomitant]
     Active Substance: SERTRALINE HYDROCHLORIDE
     Dosage: 100 MG, DAILY (1/D)
     Dates: start: 20080310
  12. INDERAL-LA [Concomitant]
     Dosage: 60 MG, DAILY (1/D)
     Route: 048

REACTIONS (3)
  - Panic attack [Recovering/Resolving]
  - Eating disorder symptom [Unknown]
  - Intentional self-injury [Recovering/Resolving]

NARRATIVE: CASE EVENT DATE: 200804
